FAERS Safety Report 8530024 (Version 2)
Quarter: 2012Q4

REPORT INFORMATION
  Report Type: 
  Country: US (occurrence: US)
  Receive Date: 20120425
  Receipt Date: 20121214
  Transmission Date: 20130627
  Serious: Yes (Death)
  Sender: FDA-Public Use
  Company Number: US-GLAXOSMITHKLINE-A0933039A

PATIENT
  Sex: Female

DRUGS (1)
  1. AVANDIA [Suspect]
     Indication: TYPE 2 DIABETES MELLITUS
     Route: 048
     Dates: start: 20030130, end: 20090704

REACTIONS (6)
  - Death [Fatal]
  - Cardiac failure congestive [Unknown]
  - Cardiogenic shock [Unknown]
  - Lactic acidosis [Unknown]
  - Brain injury [Unknown]
  - Cardiac arrest [Unknown]
